FAERS Safety Report 24105206 (Version 6)
Quarter: 2025Q3

REPORT INFORMATION
  Report Type: Spontaneous
  Country: EU (occurrence: EU)
  Receive Date: 20240717
  Receipt Date: 20250821
  Transmission Date: 20251020
  Serious: Yes (Hospitalization, Other)
  Sender: MYLAN
  Company Number: EU-OTSUKA-2024_018266

PATIENT
  Age: 44 Year
  Sex: Male

DRUGS (47)
  1. BUPRENORPHINE [Suspect]
     Active Substance: BUPRENORPHINE
     Indication: Product used for unknown indication
  2. BUPRENORPHINE [Suspect]
     Active Substance: BUPRENORPHINE
     Dosage: 16 MILLIGRAM, QD
     Dates: start: 2017
  3. BUPRENORPHINE [Suspect]
     Active Substance: BUPRENORPHINE
     Dosage: 8MG + 4 MG 1 TABLET, QD
     Dates: start: 2017
  4. BUPRENORPHINE [Suspect]
     Active Substance: BUPRENORPHINE
     Dosage: 6 MILLIGRAM, QD
     Dates: start: 2017
  5. QUETIAPINE FUMARATE [Suspect]
     Active Substance: QUETIAPINE FUMARATE
     Indication: Product used for unknown indication
     Dosage: 1 DOSAGE FORM, QD
     Dates: start: 201707
  6. QUETIAPINE FUMARATE [Suspect]
     Active Substance: QUETIAPINE FUMARATE
     Dosage: 1 DOSAGE FORM, QD (1 DF, QD (300 MG))
  7. QUETIAPINE FUMARATE [Suspect]
     Active Substance: QUETIAPINE FUMARATE
     Dosage: 2 DOSAGE FORM, QD (2 DF, QD (100 MG))
     Dates: start: 20170821
  8. QUETIAPINE FUMARATE [Suspect]
     Active Substance: QUETIAPINE FUMARATE
     Dosage: 2 DOSAGE FORM, QD
  9. ABILIFY [Suspect]
     Active Substance: ARIPIPRAZOLE
     Indication: Product used for unknown indication
     Dosage: 10 MILLIGRAM, QD
     Dates: start: 2006
  10. ABILIFY [Suspect]
     Active Substance: ARIPIPRAZOLE
     Dosage: 5 MILLIGRAM, QD (10 MG HALF TABLET)
     Dates: start: 20070316, end: 20070523
  11. ABILIFY [Suspect]
     Active Substance: ARIPIPRAZOLE
     Dosage: 15 MILLIGRAM, QD
     Dates: start: 2017, end: 20170821
  12. ABILIFY [Suspect]
     Active Substance: ARIPIPRAZOLE
  13. ABILIFY [Suspect]
     Active Substance: ARIPIPRAZOLE
  14. COCAINE [Concomitant]
     Active Substance: COCAINE
     Indication: Product used for unknown indication
  15. HEROIN [Concomitant]
     Active Substance: DIAMORPHINE
     Indication: Product used for unknown indication
  16. METHADONE [Concomitant]
     Active Substance: METHADONE HYDROCHLORIDE
     Indication: Product used for unknown indication
     Dosage: UNK, QD (50MG OR 40 MG PER DAY )
     Dates: start: 201703, end: 201703
  17. METHADONE [Concomitant]
     Active Substance: METHADONE HYDROCHLORIDE
     Dosage: 50 MILLIGRAM, TID (150 MG, QD)
     Dates: start: 201709
  18. METHADONE [Concomitant]
     Active Substance: METHADONE HYDROCHLORIDE
     Dosage: UNK, QD (50 OR 60 MG )
     Dates: start: 201710, end: 201712
  19. ALCOHOL [Concomitant]
     Active Substance: ALCOHOL
     Indication: Product used for unknown indication
  20. CANNABIS SATIVA SUBSP. INDICA TOP [Concomitant]
     Active Substance: CANNABIS SATIVA SUBSP. INDICA TOP
     Indication: Product used for unknown indication
  21. PROZAC [Concomitant]
     Active Substance: FLUOXETINE HYDROCHLORIDE
     Indication: Product used for unknown indication
     Dosage: 20 MILLIGRAM, QD
     Dates: start: 2018
  22. LITHIUM [Concomitant]
     Active Substance: LITHIUM
     Indication: Product used for unknown indication
     Dosage: 2.5 DF, QD ( 2.5 TABLETS IN THE EVENING)
     Dates: start: 2018
  23. AMISULPRIDE [Concomitant]
     Active Substance: AMISULPRIDE
     Indication: Affective disorder
     Dosage: 400 MILLIGRAM, QD
     Dates: start: 2018
  24. AMISULPRIDE [Concomitant]
     Active Substance: AMISULPRIDE
  25. ZYPREXA [Concomitant]
     Active Substance: OLANZAPINE
     Indication: Product used for unknown indication
     Dosage: 10 MILLIGRAM, QD
  26. VALPROMIDE [Concomitant]
     Active Substance: VALPROMIDE
     Indication: Product used for unknown indication
  27. DEPAKOTE [Concomitant]
     Active Substance: DIVALPROEX SODIUM
     Indication: Product used for unknown indication
     Dosage: 500 MILLIGRAM, TID (1500 MILLIGRAM, QD)
     Dates: start: 2006
  28. DEPAKOTE [Concomitant]
     Active Substance: DIVALPROEX SODIUM
     Dosage: 500 MILLIGRAM, BID (1000 MILLIGRAM, QD)
     Dates: start: 2007
  29. DEPAKOTE [Concomitant]
     Active Substance: DIVALPROEX SODIUM
     Dosage: 750 MILLIGRAM, QD
     Dates: start: 2008
  30. DEPAKOTE [Concomitant]
     Active Substance: DIVALPROEX SODIUM
     Dosage: 500 MILLIGRAM, BID
  31. SUBUTEX [Concomitant]
     Active Substance: BUPRENORPHINE HYDROCHLORIDE
     Indication: Product used for unknown indication
     Dosage: 60 MILLIGRAM, QD
  32. OXAZEPAM [Concomitant]
     Active Substance: OXAZEPAM
     Indication: Product used for unknown indication
     Dosage: 75 MILLIGRAM, QD
  33. OXAZEPAM [Concomitant]
     Active Substance: OXAZEPAM
  34. CYAMEMAZINE [Concomitant]
     Active Substance: CYAMEMAZINE
     Indication: Product used for unknown indication
     Dosage: 25 MILLIGRAM, QD (BEDTIME)
     Dates: start: 2007
  35. MUCOMYST [Concomitant]
     Active Substance: ACETYLCYSTEINE
     Indication: Product used for unknown indication
     Dosage: UNK, TID
     Dates: start: 2008
  36. AMOXICILLIN [Concomitant]
     Active Substance: AMOXICILLIN
     Indication: Product used for unknown indication
  37. PYRIDOXINE HYDROCHLORIDE\THIAMINE HYDROCHLORIDE [Concomitant]
     Active Substance: PYRIDOXINE HYDROCHLORIDE\THIAMINE HYDROCHLORIDE
     Indication: Product used for unknown indication
  38. ZOLPIDEM TARTRATE [Concomitant]
     Active Substance: ZOLPIDEM TARTRATE
     Indication: Product used for unknown indication
  39. NIACINAMIDE [Concomitant]
     Active Substance: NIACINAMIDE
     Indication: Product used for unknown indication
  40. TERALITHE [Concomitant]
     Active Substance: LITHIUM CARBONATE
     Indication: Affective disorder
  41. LOXAPINE [Concomitant]
     Active Substance: LOXAPINE
     Indication: Product used for unknown indication
  42. TRIMEPRAZINE [Concomitant]
     Active Substance: TRIMEPRAZINE
     Indication: Product used for unknown indication
  43. XANAX [Concomitant]
     Active Substance: ALPRAZOLAM
     Indication: Product used for unknown indication
  44. BACLOFEN [Concomitant]
     Active Substance: BACLOFEN
     Indication: Product used for unknown indication
  45. Dexeryl [Concomitant]
     Indication: Product used for unknown indication
  46. POLYETHYLENE GLYCOL 4000 [Concomitant]
     Active Substance: POLYETHYLENE GLYCOL 4000
     Indication: Product used for unknown indication
  47. ACAMPROSATE CALCIUM [Concomitant]
     Active Substance: ACAMPROSATE CALCIUM
     Indication: Product used for unknown indication

REACTIONS (37)
  - Schizophrenia [Recovered/Resolved]
  - Alcohol withdrawal syndrome [Recovered/Resolved]
  - Drug withdrawal syndrome [Unknown]
  - Depression [Unknown]
  - Suicidal ideation [Unknown]
  - Drug dependence [Unknown]
  - Partner stress [Unknown]
  - Sexual life impairment [Unknown]
  - Gambling disorder [Recovered/Resolved]
  - Sexually transmitted disease [Unknown]
  - Homeless [Unknown]
  - Unemployment [Unknown]
  - Malaise [Unknown]
  - Theft [Unknown]
  - Voyeurism [Unknown]
  - Sexually inappropriate behaviour [Unknown]
  - Mania [Unknown]
  - Emotional disorder [Unknown]
  - Libido increased [Unknown]
  - Economic problem [Unknown]
  - Anisocytosis [Not Recovered/Not Resolved]
  - Mean platelet volume increased [Recovering/Resolving]
  - Monocytosis [Recovered/Resolved]
  - Hyperglycaemia [Recovered/Resolved]
  - Social problem [Unknown]
  - Ear infection [Unknown]
  - Apathy [Unknown]
  - Laboratory test abnormal [Unknown]
  - Night sweats [Unknown]
  - Abulia [Unknown]
  - Hypersomnia [Unknown]
  - Delusion [Unknown]
  - Fatigue [Unknown]
  - Asthenia [Unknown]
  - Treatment noncompliance [Unknown]
  - Product dose omission in error [Unknown]
  - Wrong technique in product usage process [Recovered/Resolved]

NARRATIVE: CASE EVENT DATE: 20060101
